FAERS Safety Report 12461755 (Version 2)
Quarter: 2016Q2

REPORT INFORMATION
  Report Type: Spontaneous
  Country: US (occurrence: US)
  Receive Date: 20160613
  Receipt Date: 20160614
  Transmission Date: 20160815
  Serious: Yes (Death, Other)
  Sender: FDA-Public Use
  Company Number: US-PFIZER INC-2016291334

PATIENT
  Age: 67 Year
  Sex: Female

DRUGS (3)
  1. NEURONTIN [Suspect]
     Active Substance: GABAPENTIN
     Indication: NEUROPATHY PERIPHERAL
     Dosage: 300 MG, 4X/DAY
  2. NEURONTIN [Suspect]
     Active Substance: GABAPENTIN
     Indication: PRURITUS
  3. LYRICA [Suspect]
     Active Substance: PREGABALIN
     Dosage: UNK

REACTIONS (3)
  - Completed suicide [Fatal]
  - Pruritus [Unknown]
  - Depression [Unknown]
